FAERS Safety Report 21333916 (Version 1)
Quarter: 2022Q3

REPORT INFORMATION
  Report Type: Spontaneous
  Country: US (occurrence: None)
  Receive Date: 20220914
  Receipt Date: 20220914
  Transmission Date: 20221027
  Serious: Yes (Hospitalization)
  Sender: FDA-Public Use
  Company Number: None

PATIENT
  Sex: Female

DRUGS (2)
  1. CAPECITABINE [Suspect]
     Active Substance: CAPECITABINE
  2. TUKYSA [Suspect]
     Active Substance: TUCATINIB
     Dates: start: 20220609

REACTIONS (8)
  - Therapy interrupted [None]
  - Adverse drug reaction [None]
  - Nausea [None]
  - Hypotension [None]
  - Muscular weakness [None]
  - Gait inability [None]
  - Thrombosis [None]
  - Blood potassium decreased [None]
